FAERS Safety Report 16744326 (Version 1)
Quarter: 2019Q3

REPORT INFORMATION
  Report Type: Spontaneous
  Country: PT (occurrence: PT)
  Receive Date: 20190827
  Receipt Date: 20190827
  Transmission Date: 20191005
  Serious: Yes (Disabling)
  Sender: FDA-Public Use
  Company Number: PT-AUROBINDO-AUR-APL-2019-039528

PATIENT

DRUGS (8)
  1. TOCILIZUMAB. [Suspect]
     Active Substance: TOCILIZUMAB
     Indication: RHEUMATOID ARTHRITIS
     Dosage: 162 MILLIGRAM, EVERY WEEK
     Route: 058
     Dates: start: 20180628
  2. UNILAN [Concomitant]
     Indication: DEPRESSION
     Dosage: 0.25 MILLIGRAM, UNK
     Route: 048
  3. ZALDIAR [Concomitant]
     Active Substance: ACETAMINOPHEN\TRAMADOL HYDROCHLORIDE
     Indication: RHEUMATOID ARTHRITIS
     Dosage: UNK UNK 3, ONCE A DAY
     Route: 048
  4. ATORVASTATIN [Concomitant]
     Active Substance: ATORVASTATIN
     Indication: BLOOD CHOLESTEROL INCREASED
     Dosage: 20 MILLIGRAM, UNK
     Route: 048
  5. TRITICUM [Concomitant]
     Active Substance: TRAZODONE HYDROCHLORIDE
     Indication: DEPRESSION
     Dosage: 75 MILLIGRAM, UNK
     Route: 048
  6. MELOXICAM TABLET [Suspect]
     Active Substance: MELOXICAM
     Indication: ARTHRALGIA
     Dosage: UNK
     Route: 048
     Dates: start: 201904
  7. COVERAM [Concomitant]
     Active Substance: AMLODIPINE\PERINDOPRIL
     Indication: HYPERTENSION
     Dosage: UNK
     Route: 048
  8. LEPICORTINOLO [Concomitant]
     Active Substance: PREDNISOLONE
     Indication: RHEUMATOID ARTHRITIS
     Dosage: 5 MILLIGRAM, ONCE A DAY
     Route: 048

REACTIONS (4)
  - Injection site pruritus [Recovered/Resolved]
  - Abdominal pain upper [Recovered/Resolved]
  - Arthralgia [Recovering/Resolving]
  - Injection site mass [Recovered/Resolved]

NARRATIVE: CASE EVENT DATE: 2019
